FAERS Safety Report 9147351 (Version 3)
Quarter: 2013Q3

REPORT INFORMATION
  Report Type: Spontaneous
  Country: US (occurrence: US)
  Receive Date: 20130307
  Receipt Date: 20130701
  Transmission Date: 20140515
  Serious: Yes (Hospitalization)
  Sender: FDA-Public Use
  Company Number: US-GLAXOSMITHKLINE-A1014408A

PATIENT
  Age: 75 Year
  Sex: Female

DRUGS (5)
  1. VENTOLIN [Suspect]
     Indication: ASTHMA
     Dosage: 2PUFF FOUR TIMES PER DAY
     Route: 055
     Dates: start: 2004
  2. ADVAIR [Suspect]
     Indication: PRODUCT USED FOR UNKNOWN INDICATION
  3. BLOOD PRESSURE MEDICATION [Concomitant]
  4. CHONDROITIN [Concomitant]
  5. METAMUCIL [Concomitant]

REACTIONS (5)
  - Malaise [Unknown]
  - Wheezing [Unknown]
  - Condition aggravated [Unknown]
  - Pneumonia [Unknown]
  - Product quality issue [Unknown]
